FAERS Safety Report 7953062-9 (Version None)
Quarter: 2011Q4

REPORT INFORMATION
  Report Type: 
  Country: None (occurrence: None)
  Receive Date: 20111201
  Receipt Date: 20111129
  Transmission Date: 20120403
  Serious: Yes (Hospitalization, Other)
  Sender: FDA-Public Use
  Company Number: JP-ROXANE LABORATORIES, INC.-2011-RO-01708RO

PATIENT
  Age: 27 Year
  Sex: Female

DRUGS (6)
  1. PREDNISOLONE [Suspect]
     Indication: LUPUS NEPHRITIS
     Dosage: 7 MG
     Dates: end: 20030101
  2. METHOTREXATE [Suspect]
     Indication: ARTHRITIS
     Dates: end: 20021001
  3. METHYLPREDNISOLONE [Suspect]
     Indication: LUPUS NEPHRITIS
  4. CYCLOPHOSPHAMIDE [Suspect]
     Indication: LUPUS NEPHRITIS
  5. CYCLOPHOSPHAMIDE [Suspect]
     Dates: start: 20020601
  6. PREDNISOLONE [Suspect]
     Indication: SYSTEMIC LUPUS ERYTHEMATOSUS
     Dosage: 10 MG
     Dates: start: 20030101

REACTIONS (3)
  - REFRACTORY ANAEMIA [None]
  - MYELODYSPLASTIC SYNDROME [None]
  - PROTEINURIA [None]
